FAERS Safety Report 10962161 (Version 2)
Quarter: 2015Q2

REPORT INFORMATION
  Report Type: Spontaneous
  Country: US (occurrence: US)
  Receive Date: 20150327
  Receipt Date: 20150504
  Transmission Date: 20150821
  Serious: Yes (Hospitalization)
  Sender: FDA-Public Use
  Company Number: US-BAYER-2015-076316

PATIENT
  Age: 26 Year
  Sex: Female
  Weight: 75.28 kg

DRUGS (2)
  1. MIRENA [Suspect]
     Active Substance: LEVONORGESTREL
     Indication: CONTRACEPTION
     Dosage: 20 MCG/24HR, CONT
     Route: 015
     Dates: start: 20120523, end: 20140425
  2. HYDROCHLOROTHIAZIDE. [Concomitant]
     Active Substance: HYDROCHLOROTHIAZIDE
     Route: 048

REACTIONS (9)
  - Injury [None]
  - Uterine perforation [None]
  - Anxiety [None]
  - Fear of disease [None]
  - Emotional distress [None]
  - General physical health deterioration [None]
  - Pain [None]
  - Device issue [None]
  - Mental disorder [None]

NARRATIVE: CASE EVENT DATE: 201312
